FAERS Safety Report 6162554-7 (Version None)
Quarter: 2009Q2

REPORT INFORMATION
  Report Type: 
  Country: None (occurrence: None)
  Receive Date: 20090421
  Receipt Date: 20081125
  Transmission Date: 20091009
  Serious: Yes (Other)
  Sender: FDA-Public Use
  Company Number: US-PFIZER INC-2006119137

PATIENT
  Sex: Female
  Weight: 68 kg

DRUGS (12)
  1. CHANTIX [Suspect]
     Indication: SMOKING CESSATION THERAPY
     Dates: start: 20060901
  2. BETASERON [Suspect]
     Indication: RELAPSING-REMITTING MULTIPLE SCLEROSIS
     Dosage: 8 MIU,EVERY 2 DAYS
     Route: 058
     Dates: start: 20001006
  3. LIPITOR [Concomitant]
     Indication: BLOOD CHOLESTEROL INCREASED
     Dosage: 10 MG, UNK
     Route: 048
  4. SYNTHROID [Concomitant]
     Indication: THYROID DISORDER
     Dosage: 0.15 MG, UNK
     Route: 048
  5. NEURONTIN [Concomitant]
     Indication: NEUROPATHY PERIPHERAL
     Dosage: 800 MG, 3X/DAY
     Route: 048
  6. PAXIL [Concomitant]
  7. XANAX [Concomitant]
     Indication: ANXIETY
     Dosage: 0.5 MG, 2X/DAY
     Route: 048
  8. PROVIGIL [Concomitant]
     Indication: NARCOLEPSY
     Dosage: 200 MG, 1X/DAY
     Route: 048
  9. IBANDRONATE SODIUM [Concomitant]
     Indication: OSTEOPOROSIS
     Dosage: 150 MG, MONTHLY
  10. VICODIN [Concomitant]
     Indication: PAIN
     Dosage: 500 MG, UNK
     Route: 048
  11. AMBIEN [Concomitant]
     Indication: INSOMNIA
     Dosage: 12.5 MG, UNK
     Route: 048
  12. CYMBALTA [Concomitant]
     Indication: DEPRESSION
     Dosage: 60 MG, 2X/DAY
     Route: 048

REACTIONS (7)
  - DIPLOPIA [None]
  - FACIAL PALSY [None]
  - HYPERTENSION [None]
  - HYPOAESTHESIA [None]
  - HYPOAESTHESIA FACIAL [None]
  - MULTIPLE SCLEROSIS [None]
  - VERTIGO [None]
